FAERS Safety Report 18257832 (Version 1)
Quarter: 2020Q3

REPORT INFORMATION
  Report Type: Spontaneous
  Country: PT (occurrence: PT)
  Receive Date: 20200911
  Receipt Date: 20200911
  Transmission Date: 20201103
  Serious: Yes (Other)
  Sender: FDA-Public Use
  Company Number: PT-SAMSUNG BIOEPIS-SB-2020-27999

PATIENT
  Age: 39 Year
  Sex: Male

DRUGS (2)
  1. ADALIMUMAB [Suspect]
     Active Substance: ADALIMUMAB
     Indication: AXIAL SPONDYLOARTHRITIS
     Dosage: UNKNOWN, SOLUTION FOR INJECTION
     Route: 058
  2. ACEMETACIN [Concomitant]
     Active Substance: ACEMETACIN
     Indication: AXIAL SPONDYLOARTHRITIS
     Route: 065

REACTIONS (1)
  - Optic neuritis [Recovered/Resolved]
